FAERS Safety Report 12975720 (Version 2)
Quarter: 2017Q1

REPORT INFORMATION
  Report Type: Report from Study
  Country: US (occurrence: US)
  Receive Date: 20161125
  Receipt Date: 20170125
  Transmission Date: 20170428
  Serious: Yes (Other)
  Sender: FDA-Public Use
  Company Number: US-009507513-1611USA012010

PATIENT

DRUGS (2)
  1. SIROLIMUS. [Suspect]
     Active Substance: SIROLIMUS
     Indication: NEOPLASM MALIGNANT
     Dosage: 1 MG-5MG DAILY FOR 28 DAYS
     Route: 048
  2. ZOLINZA [Suspect]
     Active Substance: VORINOSTAT
     Indication: NEOPLASM MALIGNANT
     Dosage: 100MG-400MG DAILY FOR 28 DAYS
     Route: 048

REACTIONS (1)
  - Neutropenia [Unknown]
